FAERS Safety Report 18228327 (Version 2)
Quarter: 2020Q3

REPORT INFORMATION
  Report Type: Spontaneous
  Country: US (occurrence: US)
  Receive Date: 20200903
  Receipt Date: 20200910
  Transmission Date: 20201103
  Serious: Yes (Death, Other)
  Sender: FDA-Public Use
  Company Number: US-PFIZER INC-2018426945

PATIENT
  Age: 71 Year
  Sex: Male
  Weight: 67 kg

DRUGS (1)
  1. IBRANCE [Suspect]
     Active Substance: PALBOCICLIB
     Indication: DEDIFFERENTIATED LIPOSARCOMA
     Dosage: 125 MG, CYCLIC (21 DAYS, THEN OFF FOR 7 DAYS)
     Route: 048
     Dates: start: 201809

REACTIONS (3)
  - Product use in unapproved indication [Unknown]
  - Off label use [Unknown]
  - Death [Fatal]

NARRATIVE: CASE EVENT DATE: 201809
